FAERS Safety Report 7369761-6 (Version None)
Quarter: 2011Q1

REPORT INFORMATION
  Report Type: 
  Country: None (occurrence: None)
  Receive Date: 20110317
  Receipt Date: 20110317
  Transmission Date: 20110831
  Serious: No
  Sender: FDA-Public Use
  Company Number: None

PATIENT
  Sex: Female
  Weight: 52.1637 kg

DRUGS (1)
  1. CRESTOR [Suspect]
     Indication: HYPERLIPIDAEMIA
     Dosage: 5 MG DAILY ORAL
     Route: 048
     Dates: start: 20110120, end: 20110201

REACTIONS (4)
  - ASTHENIA [None]
  - NAUSEA [None]
  - HEADACHE [None]
  - MUSCLE SPASMS [None]
